FAERS Safety Report 14964448 (Version 1)
Quarter: 2018Q2

REPORT INFORMATION
  Report Type: Spontaneous
  Country: SE (occurrence: SE)
  Receive Date: 20180601
  Receipt Date: 20180601
  Transmission Date: 20180711
  Serious: Yes (Life-Threatening, Hospitalization)
  Sender: FDA-Public Use
  Company Number: SE-ELI_LILLY_AND_COMPANY-SE201805011910

PATIENT
  Age: 69 Year
  Sex: Female

DRUGS (1)
  1. ZYPADHERA [Suspect]
     Active Substance: OLANZAPINE PAMOATE
     Indication: SCHIZOPHRENIA
     Dosage: 405 MG, UNKNOWN
     Route: 042
     Dates: start: 20180514, end: 20180514

REACTIONS (1)
  - Post-injection delirium sedation syndrome [Not Recovered/Not Resolved]

NARRATIVE: CASE EVENT DATE: 20180514
